FAERS Safety Report 19632077 (Version 1)
Quarter: 2021Q3

REPORT INFORMATION
  Report Type: Report from Study
  Country: US (occurrence: US)
  Receive Date: 20210729
  Receipt Date: 20210729
  Transmission Date: 20211014
  Serious: Yes (Other)
  Sender: FDA-Public Use
  Company Number: US-GILEAD-2021-0542043

PATIENT

DRUGS (5)
  1. TENOFOVIR ALAFENAMIDE [Concomitant]
     Active Substance: TENOFOVIR ALAFENAMIDE
  2. EMTRICITABINE [Concomitant]
     Active Substance: EMTRICITABINE
  3. COBICISTAT [Suspect]
     Active Substance: COBICISTAT
     Indication: HIV INFECTION
     Route: 065
  4. ELVITEGRAVIR [Concomitant]
     Active Substance: ELVITEGRAVIR
  5. RIVAROXABAN [Interacting]
     Active Substance: RIVAROXABAN
     Indication: PULMONARY EMBOLISM
     Route: 048

REACTIONS (2)
  - Haemorrhage intracranial [Unknown]
  - Drug interaction [Unknown]
